FAERS Safety Report 9522185 (Version 1)
Quarter: 2013Q3

REPORT INFORMATION
  Report Type: Spontaneous
  Country: US (occurrence: None)
  Receive Date: 20130911
  Receipt Date: 20130911
  Transmission Date: 20140515
  Serious: No
  Sender: FDA-Public Use
  Company Number: AEUSA201200449

PATIENT
  Age: 15 Year
  Sex: Male

DRUGS (1)
  1. GAMUNEX-C (10 PCT) [Suspect]
     Indication: BRUTON^S AGAMMAGLOBULINAEMIA
     Route: 042
     Dates: start: 20120905, end: 20120905

REACTIONS (2)
  - Pruritus [None]
  - Penile swelling [None]
